FAERS Safety Report 5977423-2 (Version None)
Quarter: 2008Q4

REPORT INFORMATION
  Report Type: 
  Country: None (occurrence: None)
  Receive Date: 20081201
  Receipt Date: 20081201
  Transmission Date: 20090506
  Serious: Yes (Hospitalization)
  Sender: FDA-Public Use
  Company Number: None

PATIENT
  Age: 24 Year
  Sex: Male
  Weight: 87 kg

DRUGS (1)
  1. AVODART [Suspect]

REACTIONS (2)
  - ANXIETY [None]
  - BLOOD TEST ABNORMAL [None]
